FAERS Safety Report 24044506 (Version 1)
Quarter: 2024Q3

REPORT INFORMATION
  Report Type: Spontaneous
  Country: US (occurrence: US)
  Receive Date: 20240703
  Receipt Date: 20240703
  Transmission Date: 20241016
  Serious: Yes (Life-Threatening, Hospitalization, Other)
  Sender: LUPIN
  Company Number: US-LUPIN PHARMACEUTICALS INC.-2024-05521

PATIENT
  Age: 68 Year
  Sex: Male

DRUGS (2)
  1. LISINOPRIL [Suspect]
     Active Substance: LISINOPRIL
     Indication: Hypertension
     Dosage: UNK (HE HAD BEEN USING LISINOPRIL FOR OVER 5 YEARS)
     Route: 065
  2. INDOMETHACIN [Suspect]
     Active Substance: INDOMETHACIN
     Indication: Product used for unknown indication
     Dosage: UNK, SPORADIC USE, HE STOPPED INDOMETHACIN BUT RESUMED IT THE NIGHT BEFORE TO HIS THIRD PRESENTATION
     Route: 065

REACTIONS (2)
  - Acute respiratory failure [Recovered/Resolved]
  - Angioedema [Recovered/Resolved]
